FAERS Safety Report 21663860 (Version 3)
Quarter: 2022Q4

REPORT INFORMATION
  Report Type: Spontaneous
  Country: AU (occurrence: AU)
  Receive Date: 20221130
  Receipt Date: 20221227
  Transmission Date: 20230113
  Serious: Yes (Hospitalization, Other)
  Sender: FDA-Public Use
  Company Number: AU-BAXTER-2022BAX025284

PATIENT
  Age: 82 Year
  Sex: Female

DRUGS (22)
  1. SODIUM CHLORIDE [Suspect]
     Active Substance: SODIUM CHLORIDE
     Indication: Medication dilution
     Dosage: 240 ML AT AN UNSPECIFIED DOSE AND FREQUENCY
     Route: 042
     Dates: start: 202211, end: 202211
  2. SODIUM CHLORIDE [Suspect]
     Active Substance: SODIUM CHLORIDE
     Dosage: 240 ML AT AN UNSPECIFIED DOSE AND FREQUENCY
     Route: 042
     Dates: start: 202211, end: 202211
  3. SODIUM CHLORIDE [Suspect]
     Active Substance: SODIUM CHLORIDE
     Dosage: 240 ML AT AN UNSPECIFIED DOSE AND FREQUENCY
     Route: 042
     Dates: start: 202211, end: 202211
  4. SODIUM CHLORIDE [Suspect]
     Active Substance: SODIUM CHLORIDE
     Dosage: 240 ML AT AN UNSPECIFIED DOSE AND FREQUENCY
     Route: 042
     Dates: start: 202211, end: 202211
  5. SODIUM CHLORIDE [Suspect]
     Active Substance: SODIUM CHLORIDE
     Dosage: UNK
     Route: 042
     Dates: start: 20221118
  6. SODIUM CHLORIDE [Suspect]
     Active Substance: SODIUM CHLORIDE
     Dosage: UNK
     Route: 042
     Dates: start: 20221122, end: 20221122
  7. CITRATE [Suspect]
     Active Substance: CITRIC ACID MONOHYDRATE
     Dosage: BUFFER
     Route: 042
     Dates: start: 202211, end: 202211
  8. CITRATE [Suspect]
     Active Substance: CITRIC ACID MONOHYDRATE
     Dosage: BUFFER
     Route: 042
     Dates: start: 202211, end: 202211
  9. CITRATE [Suspect]
     Active Substance: CITRIC ACID MONOHYDRATE
     Dosage: BUFFER
     Route: 042
     Dates: start: 202211, end: 202211
  10. CITRATE [Suspect]
     Active Substance: CITRIC ACID MONOHYDRATE
     Dosage: BUFFER
     Route: 042
     Dates: start: 202211, end: 202211
  11. CITRATE [Suspect]
     Active Substance: CITRIC ACID MONOHYDRATE
     Dosage: BUFFER
     Route: 042
     Dates: start: 20221118
  12. CITRATE [Suspect]
     Active Substance: CITRIC ACID MONOHYDRATE
     Dosage: BUFFER
     Route: 042
     Dates: start: 20221122, end: 20221122
  13. PENICILLIN G [Suspect]
     Active Substance: PENICILLIN G
     Indication: Streptococcal endocarditis
     Dosage: (CSL) 10.8 G IN 0.9% NACL AT AN UNSPECIFIED DOSE AND FREQUENCY
     Route: 042
     Dates: start: 202211, end: 202211
  14. PENICILLIN G [Suspect]
     Active Substance: PENICILLIN G
     Dosage: (CSL) 10.8 G IN 0.9% NACL AT AN UNSPECIFIED DOSE AND FREQUENCY
     Route: 042
     Dates: start: 202211, end: 202211
  15. PENICILLIN G [Suspect]
     Active Substance: PENICILLIN G
     Dosage: (CSL) 10.8 G IN 0.9% NACL AT AN UNSPECIFIED DOSE AND FREQUENCY
     Route: 042
     Dates: start: 202211, end: 202211
  16. PENICILLIN G [Suspect]
     Active Substance: PENICILLIN G
     Dosage: (CSL) 10.8 G IN 0.9% NACL AT AN UNSPECIFIED DOSE AND FREQUENCY
     Route: 042
     Dates: start: 202211, end: 202211
  17. PENICILLIN G [Suspect]
     Active Substance: PENICILLIN G
     Dosage: UNK
     Route: 042
     Dates: start: 20221118
  18. PENICILLIN G [Suspect]
     Active Substance: PENICILLIN G
     Dosage: INTERMITTENT DOSING AGAIN
     Route: 042
     Dates: start: 20221122, end: 20221122
  19. AMPICILLIN [Suspect]
     Active Substance: AMPICILLIN
     Dosage: UNK
     Route: 065
     Dates: start: 20221102, end: 20221103
  20. CEFTRIAXONE [Suspect]
     Active Substance: CEFTRIAXONE
     Dosage: UNK
     Route: 065
     Dates: start: 20221103
  21. PENICILLIN G [Suspect]
     Active Substance: PENICILLIN G
     Indication: Streptococcal endocarditis
     Dosage: UNK
     Route: 065
     Dates: start: 20221104
  22. GENTAMICIN [Suspect]
     Active Substance: GENTAMICIN
     Dosage: ON 10-NOV, GENTAMYCIN WAS CEASED
     Route: 065
     Dates: start: 20221104, end: 20221110

REACTIONS (4)
  - Disease progression [Recovering/Resolving]
  - Blood creatinine increased [Recovering/Resolving]
  - Acute kidney injury [Recovering/Resolving]
  - Pyrexia [Recovered/Resolved]

NARRATIVE: CASE EVENT DATE: 20221101
